FAERS Safety Report 25427578 (Version 1)
Quarter: 2025Q2

REPORT INFORMATION
  Report Type: Report from Study
  Country: ES (occurrence: None)
  Receive Date: 20250612
  Receipt Date: 20250612
  Transmission Date: 20250717
  Serious: Yes (Other)
  Sender: ENCUBE ETHICALS
  Company Number: ES-Encube-001917

PATIENT
  Age: 21 Year
  Sex: Male

DRUGS (2)
  1. TESTOSTERONE [Suspect]
     Active Substance: TESTOSTERONE
     Indication: Gender dysphoria
  2. ENOXAPARIN SODIUM [Suspect]
     Active Substance: ENOXAPARIN SODIUM
     Indication: Product used for unknown indication

REACTIONS (3)
  - Off label use [Unknown]
  - Platelet disorder [Recovering/Resolving]
  - Haemorrhage [Recovering/Resolving]
